FAERS Safety Report 18749698 (Version 1)
Quarter: 2021Q1

REPORT INFORMATION
  Report Type: Spontaneous
  Country: FR (occurrence: FR)
  Receive Date: 20210117
  Receipt Date: 20210117
  Transmission Date: 20210419
  Serious: Yes (Death, Hospitalization)
  Sender: FDA-Public Use
  Company Number: FR-TEVA-2021-FR-1868495

PATIENT
  Age: 46 Year
  Sex: Male

DRUGS (1)
  1. BUPRENORPHINE. [Suspect]
     Active Substance: BUPRENORPHINE
     Route: 065

REACTIONS (3)
  - Stress cardiomyopathy [Fatal]
  - Coma [Fatal]
  - Tachycardia [Fatal]
